FAERS Safety Report 5680598-6 (Version None)
Quarter: 2008Q1

REPORT INFORMATION
  Report Type: 
  Country: None (occurrence: None)
  Receive Date: 20080326
  Receipt Date: 20080325
  Transmission Date: 20080703
  Serious: Yes (Hospitalization)
  Sender: FDA-Public Use
  Company Number: DE-WYE-G01219508

PATIENT
  Sex: Male
  Weight: 85 kg

DRUGS (11)
  1. TYGACIL [Suspect]
     Indication: PNEUMONIA
     Route: 042
     Dates: start: 20080203, end: 20080203
  2. TYGACIL [Suspect]
     Route: 042
     Dates: start: 20080204, end: 20080212
  3. CIPRO [Concomitant]
     Dates: start: 20080131, end: 20080203
  4. MERONEM [Concomitant]
     Route: 042
     Dates: start: 20080208, end: 20080212
  5. SULTANOL [Concomitant]
  6. FUROSEMIDE [Concomitant]
  7. NEXIUM [Concomitant]
  8. ACTRAPID INSULIN NOVO [Concomitant]
  9. ACETYLCYSTEINE [Concomitant]
  10. TAZOBACTAM [Concomitant]
     Route: 042
     Dates: start: 20080127, end: 20080207
  11. ENOXAPARIN SODIUM [Concomitant]

REACTIONS (2)
  - C-REACTIVE PROTEIN INCREASED [None]
  - DRUG INEFFECTIVE [None]
